FAERS Safety Report 9464049 (Version 49)
Quarter: 2021Q1

REPORT INFORMATION
  Report Type: Report from Study
  Country: CA (occurrence: CA)
  Receive Date: 20130819
  Receipt Date: 20210319
  Transmission Date: 20210420
  Serious: Yes (Hospitalization, Other)
  Sender: FDA-Public Use
  Company Number: PHHY2013CA085730

PATIENT
  Age: 67 Year
  Sex: Male

DRUGS (9)
  1. SANDOSTATIN [Suspect]
     Active Substance: OCTREOTIDE ACETATE
     Dosage: ONCE/SINGLE (TEST DOSE)
     Route: 058
     Dates: start: 20150122, end: 20150122
  2. SANDOSTATIN LAR DEPOT [Suspect]
     Active Substance: OCTREOTIDE ACETATE
     Dosage: 250 UG, TID
     Route: 058
     Dates: start: 2013, end: 2013
  3. CODEINE PHOSPHATE [Suspect]
     Active Substance: CODEINE PHOSPHATE
     Indication: PRODUCT USED FOR UNKNOWN INDICATION
     Dosage: UNK
     Route: 065
  4. SANDOSTATIN LAR DEPOT [Suspect]
     Active Substance: OCTREOTIDE ACETATE
     Indication: NEUROENDOCRINE TUMOUR
     Dosage: 30 MG, QMO (EVERY 4 WEEKS)
     Route: 030
     Dates: start: 20130711
  5. SANDOSTATIN LAR DEPOT [Suspect]
     Active Substance: OCTREOTIDE ACETATE
     Dosage: UNK
     Route: 058
     Dates: start: 2014, end: 2014
  6. SANDOSTATIN [Suspect]
     Active Substance: OCTREOTIDE ACETATE
     Dosage: ONCE/SINGLE (TEST DOSE)
     Route: 058
     Dates: start: 20141127, end: 20141127
  7. SANDOSTATIN LAR DEPOT [Suspect]
     Active Substance: OCTREOTIDE ACETATE
     Dosage: UNK
     Route: 058
     Dates: start: 2015
  8. EMPAGLIFLOZIN [Concomitant]
     Active Substance: EMPAGLIFLOZIN
     Indication: DIABETES MELLITUS
     Dosage: 25 MG, QD
     Route: 065
     Dates: start: 20200722
  9. SANDOSTATIN [Suspect]
     Active Substance: OCTREOTIDE ACETATE
     Indication: NEUROENDOCRINE TUMOUR
     Dosage: 250 UG, TID
     Route: 058
     Dates: start: 20130711, end: 2013

REACTIONS (17)
  - Pancreatic carcinoma [Unknown]
  - Second primary malignancy [Unknown]
  - Blood pressure increased [Unknown]
  - Malaise [Recovering/Resolving]
  - Dyspepsia [Unknown]
  - Basal cell carcinoma [Unknown]
  - Cataract [Not Recovered/Not Resolved]
  - Cough [Unknown]
  - Vision blurred [Unknown]
  - Nasal congestion [Not Recovered/Not Resolved]
  - Gastrooesophageal reflux disease [Unknown]
  - Blood pressure diastolic decreased [Unknown]
  - Skin mass [Unknown]
  - Pyrexia [Recovering/Resolving]
  - Arthralgia [Recovering/Resolving]
  - Nasopharyngitis [Unknown]
  - Anxiety [Unknown]

NARRATIVE: CASE EVENT DATE: 20141127
